FAERS Safety Report 9707447 (Version 1)
Quarter: 2013Q4

REPORT INFORMATION
  Report Type: Spontaneous
  Country: US (occurrence: None)
  Receive Date: 20131122
  Receipt Date: 20131122
  Transmission Date: 20140711
  Serious: Yes (Other)
  Sender: FDA-Public Use
  Company Number: None

PATIENT
  Age: 71 Year
  Sex: Male

DRUGS (1)
  1. FORTEO 600MCG ELI LILLY [Suspect]
     Indication: OSTEOPOROSIS
     Dosage: 20MCG DAILY SQ
     Route: 058
     Dates: start: 20130308

REACTIONS (1)
  - Heart valve replacement [None]
